FAERS Safety Report 9387502 (Version 1)
Quarter: 2013Q3

REPORT INFORMATION
  Report Type: Spontaneous
  Country: US (occurrence: None)
  Receive Date: 20130702
  Receipt Date: 20130702
  Transmission Date: 20140515
  Serious: Yes (Hospitalization)
  Sender: FDA-Public Use
  Company Number: FK201302269

PATIENT
  Sex: Female

DRUGS (3)
  1. SODIUM CHLORIDE [Suspect]
     Indication: MEDICATION DILUTION
  2. OMNIPAQUE(IOHEXOL)(IOHEXOL) [Concomitant]
  3. KENALOG(TRIAMCINOLONE ACETONIDE)(TRIAMCINOLONE ACETONIDE) [Concomitant]

REACTIONS (1)
  - Meningitis [None]
